FAERS Safety Report 9161373 (Version 1)
Quarter: 2013Q1

REPORT INFORMATION
  Report Type: Spontaneous
  Country: US (occurrence: US)
  Receive Date: 20130313
  Receipt Date: 20130313
  Transmission Date: 20140127
  Serious: No
  Sender: FDA-Public Use
  Company Number: US-009507513-1303USA005083

PATIENT
  Sex: Male

DRUGS (4)
  1. DULERA [Suspect]
     Indication: ASTHMA
     Dosage: 200 MCG/5 MCG TAKEN 1 PUFF, BID
     Route: 055
     Dates: end: 20130307
  2. NEXIUM [Concomitant]
  3. LISINOPRIL [Concomitant]
  4. CARDURA [Concomitant]

REACTIONS (1)
  - Epigastric discomfort [Recovering/Resolving]
